FAERS Safety Report 21110769 (Version 8)
Quarter: 2023Q1

REPORT INFORMATION
  Report Type: Report from Study
  Country: GB (occurrence: GB)
  Receive Date: 20220721
  Receipt Date: 20230106
  Transmission Date: 20230417
  Serious: Yes (Hospitalization)
  Sender: FDA-Public Use
  Company Number: GB-JNJFOC-20220452619

PATIENT
  Age: 67 Year
  Sex: Male
  Weight: 75.6 kg

DRUGS (23)
  1. TECLISTAMAB [Suspect]
     Active Substance: TECLISTAMAB
     Indication: Plasma cell myeloma
     Dosage: 10MG/ML VIAL
     Route: 058
     Dates: start: 20220218, end: 20220222
  2. TECLISTAMAB [Suspect]
     Active Substance: TECLISTAMAB
     Dosage: LATEST DOSE 18-MAY-2022 (ALSO REPORTED AS 20-APR-2022)?DOSE ALSO REPORTED AS 2.3 ML
     Route: 058
     Dates: start: 20220223
  3. TECLISTAMAB [Suspect]
     Active Substance: TECLISTAMAB
     Route: 058
     Dates: start: 20220216, end: 20220218
  4. DARATUMUMAB [Suspect]
     Active Substance: DARATUMUMAB
     Indication: Plasma cell myeloma
     Dosage: LATEST DOSE 18-MAY-2022 (ALSO REPORTED AS 20-APR-2022) ?DOSE ALSO REPORTED AS 15 ML.
     Route: 058
     Dates: start: 20220215, end: 20220215
  5. DARATUMUMAB [Suspect]
     Active Substance: DARATUMUMAB
     Route: 058
     Dates: start: 20220223, end: 20220518
  6. POLYETHYLENE GLYCOL 3350\POTASSIUM CHLORIDE\SODIUM BICARBONATE\SODIUM [Concomitant]
     Active Substance: POLYETHYLENE GLYCOL 3350\POTASSIUM CHLORIDE\SODIUM BICARBONATE\SODIUM CHLORIDE
     Indication: Constipation
     Route: 048
     Dates: start: 20220208
  7. FAMOTIDINE [Concomitant]
     Active Substance: FAMOTIDINE
     Indication: Gastrointestinal disorder
     Route: 048
     Dates: start: 20220215
  8. ENOXAPARIN SODIUM [Concomitant]
     Active Substance: ENOXAPARIN SODIUM
     Indication: Thrombosis prophylaxis
     Route: 058
     Dates: start: 20220216, end: 20220623
  9. ENOXAPARIN SODIUM [Concomitant]
     Active Substance: ENOXAPARIN SODIUM
     Route: 058
     Dates: start: 20220529, end: 20220602
  10. ACYCLOVIR [Concomitant]
     Active Substance: ACYCLOVIR
     Indication: Infection prophylaxis
     Route: 048
     Dates: start: 20220216
  11. COTRIMOXAZOLE [Concomitant]
     Active Substance: SULFAMETHOXAZOLE\TRIMETHOPRIM
     Indication: Antifungal prophylaxis
     Route: 048
     Dates: start: 20220219
  12. METOCLOPRAMIDE [Concomitant]
     Active Substance: METOCLOPRAMIDE
     Indication: Nausea
     Route: 048
     Dates: start: 20220219
  13. ONDANSETRON [Concomitant]
     Active Substance: ONDANSETRON
     Indication: Prophylaxis of nausea and vomiting
     Dosage: 4-8
     Route: 048
     Dates: start: 20220220
  14. DOCUSATE [Concomitant]
     Active Substance: DOCUSATE
     Indication: Constipation
     Route: 048
     Dates: start: 20220226
  15. AUGMENTIN [Concomitant]
     Active Substance: AMOXICILLIN\CLAVULANATE POTASSIUM
     Indication: Lower respiratory tract infection
     Route: 048
     Dates: start: 20220321
  16. ALBUTEROL [Concomitant]
     Active Substance: ALBUTEROL
     Indication: Lower respiratory tract infection
     Dosage: 1-2
     Route: 055
     Dates: start: 20220321
  17. ALBUTEROL [Concomitant]
     Active Substance: ALBUTEROL
     Indication: Bacterial infection
  18. PROPRANOLOL HYDROCHLORIDE [Concomitant]
     Active Substance: PROPRANOLOL HYDROCHLORIDE
     Indication: Tremor
     Route: 048
  19. PROPRANOLOL HYDROCHLORIDE [Concomitant]
     Active Substance: PROPRANOLOL HYDROCHLORIDE
     Indication: Hypertension
  20. ACETAMINOPHEN [Concomitant]
     Active Substance: ACETAMINOPHEN
     Indication: Cancer pain
     Route: 048
  21. MORPHINE SULFATE [Concomitant]
     Active Substance: MORPHINE SULFATE
     Indication: Cancer pain
     Route: 048
  22. ZOPICLONE [Concomitant]
     Active Substance: ZOPICLONE
     Indication: Insomnia
     Route: 048
     Dates: start: 20220614, end: 20220623
  23. FILGRASTIM [Concomitant]
     Active Substance: FILGRASTIM
     Indication: Neutrophil count decreased
     Route: 058
     Dates: start: 20220413, end: 20220416

REACTIONS (3)
  - Neutropenic infection [Recovered/Resolved]
  - Febrile neutropenia [Recovered/Resolved]
  - Rhinovirus infection [Recovering/Resolving]

NARRATIVE: CASE EVENT DATE: 20220423
